FAERS Safety Report 17593063 (Version 1)
Quarter: 2020Q1

REPORT INFORMATION
  Report Type: Spontaneous
  Country: US (occurrence: US)
  Receive Date: 20200327
  Receipt Date: 20200327
  Transmission Date: 20200409
  Serious: No
  Sender: FDA-Public Use
  Company Number: US-TOPROL ACQUISITION LLC-2019-TOP-000893

PATIENT
  Sex: Female
  Weight: 79.37 kg

DRUGS (9)
  1. NOVOLOG [Concomitant]
     Active Substance: INSULIN ASPART
     Indication: DIABETES MELLITUS
     Dosage: 5 USP UNIT, QD
     Route: 058
     Dates: start: 1998
  2. ROSUVASTATIN CALCIUM. [Concomitant]
     Active Substance: ROSUVASTATIN CALCIUM
     Indication: HYPERCHOLESTEROLAEMIA
     Dosage: 10 MG, QD
     Dates: start: 201904
  3. TOUJEO [Concomitant]
     Active Substance: INSULIN GLARGINE
     Indication: DIABETES MELLITUS
     Dosage: 100 USP UNIT, QD
     Route: 058
     Dates: start: 2015
  4. BRILINTA [Concomitant]
     Active Substance: TICAGRELOR
     Indication: STENT PLACEMENT
     Dosage: 90 MG, BID
     Route: 048
     Dates: start: 201904
  5. METOPROLOL SUCCINATE. [Suspect]
     Active Substance: METOPROLOL SUCCINATE
     Indication: PALPITATIONS
  6. VITAMIN D3 [Concomitant]
     Active Substance: CHOLECALCIFEROL
     Indication: PRODUCT USED FOR UNKNOWN INDICATION
     Dosage: 5000 IU, QD
     Route: 048
  7. VASCEPA [Concomitant]
     Active Substance: ICOSAPENT ETHYL
     Indication: BLOOD TRIGLYCERIDES
     Dosage: 0.5 G, BID
  8. METOPROLOL SUCCINATE. [Suspect]
     Active Substance: METOPROLOL SUCCINATE
     Indication: CHEST PAIN
     Dosage: 25 MG, QD
     Route: 048
     Dates: start: 201904
  9. PROAIR HFA [Concomitant]
     Active Substance: ALBUTEROL SULFATE
     Indication: ASTHMA
     Dosage: 90 ?G, PRN
     Route: 055

REACTIONS (3)
  - Dyspnoea [Not Recovered/Not Resolved]
  - Off label use [Unknown]
  - Lung disorder [Not Recovered/Not Resolved]
